FAERS Safety Report 11575049 (Version 1)
Quarter: 2015Q3

REPORT INFORMATION
  Report Type: Spontaneous
  Country: US (occurrence: None)
  Receive Date: 20150929
  Receipt Date: 20150929
  Transmission Date: 20151125
  Serious: No
  Sender: FDA-Public Use
  Company Number: None

PATIENT
  Age: 87 Year
  Sex: Female

DRUGS (1)
  1. SCIATICA RELIEF [Suspect]
     Active Substance: HOMEOPATHICS
     Route: 048
     Dates: start: 20150926, end: 20150927

REACTIONS (4)
  - Vomiting [None]
  - Nausea [None]
  - Fatigue [None]
  - Diarrhoea [None]

NARRATIVE: CASE EVENT DATE: 20150927
